FAERS Safety Report 15387631 (Version 2)
Quarter: 2019Q2

REPORT INFORMATION
  Report Type: Spontaneous
  Country: US (occurrence: US)
  Receive Date: 20180914
  Receipt Date: 20190402
  Transmission Date: 20190711
  Serious: No
  Sender: FDA-Public Use
  Company Number: US-TAKEDA-2018MPI011438

PATIENT
  Sex: Male
  Weight: 77.1 kg

DRUGS (1)
  1. NINLARO [Suspect]
     Active Substance: IXAZOMIB CITRATE
     Indication: PLASMA CELL MYELOMA
     Dosage: 2.3 MG, UNK
     Route: 048

REACTIONS (3)
  - Platelet count decreased [Unknown]
  - Bone marrow myelogram abnormal [Unknown]
  - Vitamin D decreased [Unknown]
